FAERS Safety Report 5263398-0 (Version None)
Quarter: 2007Q1

REPORT INFORMATION
  Report Type: 
  Country: None (occurrence: None)
  Receive Date: 20070309
  Receipt Date: 20070309
  Transmission Date: 20070707
  Serious: Yes (Hospitalization)
  Sender: FDA-Public Use
  Company Number: None

PATIENT
  Sex: Female
  Weight: 30 kg

DRUGS (1)
  1. WINRHO SDF [Suspect]
     Indication: IDIOPATHIC THROMBOCYTOPENIC PURPURA
     Dosage: 2300 UNITS TIMES ONE IV
     Route: 042
     Dates: start: 20070209, end: 20070209

REACTIONS (8)
  - CHILLS [None]
  - HAEMODIALYSIS [None]
  - HAEMOGLOBINAEMIA [None]
  - HAEMOGLOBINURIA [None]
  - MYALGIA [None]
  - PYREXIA [None]
  - RENAL FAILURE ACUTE [None]
  - VOMITING [None]
